FAERS Safety Report 18708945 (Version 1)
Quarter: 2021Q1

REPORT INFORMATION
  Report Type: Spontaneous
  Country: DE (occurrence: DE)
  Receive Date: 20210107
  Receipt Date: 20210107
  Transmission Date: 20210419
  Serious: Yes (Other)
  Sender: FDA-Public Use
  Company Number: DE-AUROBINDO-AUR-APL-2020-064362

PATIENT
  Sex: Female

DRUGS (5)
  1. VALSARTAN 1A PHARMA [Suspect]
     Active Substance: VALSARTAN
     Indication: HYPERTENSION
     Dosage: 160 MILLIGRAM, TWO TIMES A DAY (320 MG, ONCE A DAY)
     Route: 065
     Dates: start: 201701
  2. IBUFLAM [Concomitant]
     Indication: PRODUCT USED FOR UNKNOWN INDICATION
     Dosage: 800 MILLIGRAM
     Route: 065
     Dates: start: 2015
  3. KOMBOGLYZE [Concomitant]
     Active Substance: METFORMIN HYDROCHLORIDE\SAXAGLIPTIN
     Indication: PRODUCT USED FOR UNKNOWN INDICATION
     Dosage: 2.5 MILLIGRAM
     Route: 065
     Dates: start: 2012
  4. VALSARTAN FILM?COATED TABLET [Suspect]
     Active Substance: VALSARTAN
     Indication: HYPERTENSION
     Dosage: 160 MILLIGRAM, TWO TIMES A DAY (320 MG, ONCE A DAY)
     Route: 065
     Dates: start: 20150818, end: 201804
  5. JANUMET [Concomitant]
     Active Substance: METFORMIN HYDROCHLORIDE\SITAGLIPTIN PHOSPHATE
     Indication: PRODUCT USED FOR UNKNOWN INDICATION
     Dosage: 50 MILLIGRAM
     Route: 065
     Dates: start: 202002

REACTIONS (5)
  - Dizziness [Recovered/Resolved]
  - Emotional distress [Unknown]
  - Headache [Recovered/Resolved]
  - Osteoarthritis [Unknown]
  - Cerebrovascular accident [Unknown]

NARRATIVE: CASE EVENT DATE: 2018
